FAERS Safety Report 24339458 (Version 5)
Quarter: 2025Q3

REPORT INFORMATION
  Report Type: Spontaneous
  Country: CA (occurrence: CA)
  Receive Date: 20240919
  Receipt Date: 20250918
  Transmission Date: 20251020
  Serious: Yes (Other)
  Sender: ANI
  Company Number: CA-ANIPHARMA-2024-CA-004035

PATIENT
  Age: 53 Year
  Sex: Male

DRUGS (15)
  1. CANDESARTAN [Suspect]
     Active Substance: CANDESARTAN
     Indication: Product used for unknown indication
     Route: 048
  2. AZD-1222 [Suspect]
     Active Substance: AZD-1222
  3. METFORMIN [Suspect]
     Active Substance: METFORMIN HYDROCHLORIDE
  4. OMEPRAZOLE [Suspect]
     Active Substance: OMEPRAZOLE
  5. DAPAGLIFLOZIN [Suspect]
     Active Substance: DAPAGLIFLOZIN
  6. FELODIPINE [Suspect]
     Active Substance: FELODIPINE
     Route: 048
  7. RAMIPRIL [Concomitant]
     Active Substance: RAMIPRIL
  8. RIVAROXABAN [Concomitant]
     Active Substance: RIVAROXABAN
  9. ESOMEPRAZOLE [Suspect]
     Active Substance: ESOMEPRAZOLE
  10. NEXIUM 24HR [Suspect]
     Active Substance: ESOMEPRAZOLE MAGNESIUM
  11. ROSUVASTATIN [Suspect]
     Active Substance: ROSUVASTATIN
  12. METFORMIN [Suspect]
     Active Substance: METFORMIN HYDROCHLORIDE
  13. CRESTOR [Suspect]
     Active Substance: ROSUVASTATIN CALCIUM
  14. BUDESONIDE [Suspect]
     Active Substance: BUDESONIDE
     Route: 048
  15. PULMICORT TURBUHALER [Suspect]
     Active Substance: BUDESONIDE

REACTIONS (54)
  - Abdominal discomfort [Unknown]
  - Colitis ulcerative [Unknown]
  - Condition aggravated [Unknown]
  - Confusional state [Unknown]
  - Deep vein thrombosis [Unknown]
  - Depression [Unknown]
  - Dysgeusia [Unknown]
  - Eczema [Unknown]
  - Fatigue [Unknown]
  - Frequent bowel movements [Unknown]
  - Gingival pain [Unknown]
  - Accidental overdose [Unknown]
  - Haematochezia [Unknown]
  - Headache [Unknown]
  - Hypopnoea [Unknown]
  - Impaired work ability [Unknown]
  - Inappropriate schedule of product administration [Unknown]
  - Intentional product use issue [Unknown]
  - Loss of personal independence in daily activities [Unknown]
  - Medication error [Unknown]
  - Migraine [Unknown]
  - Nightmare [Unknown]
  - Arthritis [Unknown]
  - Off label use [Unknown]
  - Pain [Unknown]
  - Pain in extremity [Unknown]
  - Palpitations [Unknown]
  - Parosmia [Unknown]
  - Pulmonary embolism [Unknown]
  - Pyrexia [Unknown]
  - Rash [Unknown]
  - Rectal haemorrhage [Unknown]
  - Rhinitis [Unknown]
  - Burns second degree [Unknown]
  - Somnolence [Unknown]
  - Stress [Unknown]
  - Swollen tongue [Unknown]
  - Systemic lupus erythematosus [Unknown]
  - Tinnitus [Unknown]
  - Tubulointerstitial nephritis [Unknown]
  - Vertigo [Unknown]
  - Weight decreased [Unknown]
  - Drug ineffective [Unknown]
  - Bronchiectasis [Unknown]
  - Alcohol poisoning [Unknown]
  - Adverse drug reaction [Unknown]
  - Impaired quality of life [Unknown]
  - Steroid dependence [Unknown]
  - Off label use [Unknown]
  - Product use in unapproved indication [Unknown]
  - COVID-19 [Unknown]
  - Cardiac murmur [Unknown]
  - Catarrh [Unknown]
  - Cerebrovascular accident [Unknown]
